FAERS Safety Report 15440224 (Version 2)
Quarter: 2018Q4

REPORT INFORMATION
  Report Type: Spontaneous
  Country: BY (occurrence: BY)
  Receive Date: 20180928
  Receipt Date: 20181005
  Transmission Date: 20190204
  Serious: Yes (Congenital Anomaly)
  Sender: FDA-Public Use
  Company Number: BY-NOVOPROD-623085

PATIENT
  Sex: Male
  Weight: 2.51 kg

DRUGS (20)
  1. INSULIN ASPART [Suspect]
     Active Substance: INSULIN ASPART
     Dosage: 6-8 IU (32 WEEKS)
     Route: 064
  2. METHYLDOPA. [Concomitant]
     Active Substance: METHYLDOPA
     Dosage: 1500 MG, QD
  3. BISOPROLOL [Concomitant]
     Active Substance: BISOPROLOL
     Dosage: UNK
  4. IRON [Concomitant]
     Active Substance: IRON
  5. LEVEMIR [Suspect]
     Active Substance: INSULIN DETEMIR
     Indication: TYPE 1 DIABETES MELLITUS
     Dosage: 10 IU, QD (4+6 IU)
     Route: 064
  6. LEVEMIR [Suspect]
     Active Substance: INSULIN DETEMIR
     Dosage: 12 IU (BY 32 WEEKS)
     Route: 064
  7. PENICILLIN                         /00000901/ [Concomitant]
     Active Substance: PENICILLIN G
     Dosage: UNK
  8. LEVEMIR [Suspect]
     Active Substance: INSULIN DETEMIR
     Dosage: 14 IU (AT 36 WEEKS)
     Route: 064
     Dates: end: 20161229
  9. INSULIN ASPART [Suspect]
     Active Substance: INSULIN ASPART
     Indication: TYPE 1 DIABETES MELLITUS
     Dosage: 8+8+8+8 IU
     Route: 064
  10. INSULIN ASPART [Suspect]
     Active Substance: INSULIN ASPART
     Dosage: 8-10 IU (36 WEEKS AND BEFORE DELIVERY)
     Route: 064
     Dates: end: 20161229
  11. AMLODIPINE [Concomitant]
     Active Substance: AMLODIPINE BESYLATE
     Dosage: UNK
  12. CYCLOSPORINE. [Concomitant]
     Active Substance: CYCLOSPORINE
     Dosage: 250 MG
  13. AZATHIOPRINE. [Concomitant]
     Active Substance: AZATHIOPRINE
     Dosage: 100 MG
  14. VITAMIN B 1-6-12 [Concomitant]
     Active Substance: CYANOCOBALAMIN\PYRIDOXINE\THIAMINE
     Dosage: UNK
  15. INSULIN ASPART [Suspect]
     Active Substance: INSULIN ASPART
     Dosage: 8-10 IU (AT 12 WEEKS OF GESTATION)
     Route: 064
  16. LEVEMIR [Suspect]
     Active Substance: INSULIN DETEMIR
     Dosage: 16 IU, QD (AT THE END OF FIRST TRIMESTER)
     Route: 064
  17. FOLIC ACID. [Concomitant]
     Active Substance: FOLIC ACID
  18. LEVEMIR [Suspect]
     Active Substance: INSULIN DETEMIR
     Dosage: 14 IU (BY 30 WEEKS OF GESTATION)
     Route: 064
  19. INSULIN ASPART [Suspect]
     Active Substance: INSULIN ASPART
     Dosage: 8 IU (AT 30 WEEKS)
     Route: 064
  20. METHYLDOPA. [Concomitant]
     Active Substance: METHYLDOPA
     Dosage: 1000 MG, QD

REACTIONS (2)
  - Ventricular septal defect [Recovered/Resolved]
  - Foetal exposure during pregnancy [Recovered/Resolved]
